FAERS Safety Report 14600913 (Version 6)
Quarter: 2019Q1

REPORT INFORMATION
  Report Type: Report from Study
  Country: JP (occurrence: JP)
  Receive Date: 20180305
  Receipt Date: 20190205
  Transmission Date: 20190417
  Serious: Yes (Life-Threatening, Hospitalization, Other)
  Sender: FDA-Public Use
  Company Number: JP-ACTELION-A-CH2018-168627

PATIENT
  Age: 76 Year
  Sex: Male

DRUGS (35)
  1. ULTIBRO [Concomitant]
     Active Substance: GLYCOPYRRONIUM\INDACATEROL
  2. SENNOSIDE [Concomitant]
     Active Substance: SENNOSIDES
  3. DIART [Concomitant]
     Active Substance: AZOSEMIDE
  4. QUETIAPINE. [Concomitant]
     Active Substance: QUETIAPINE
  5. ASPARA POTASSIUM [Concomitant]
     Active Substance: POTASSIUM ASPARTATE
  6. DOBUPUM [Concomitant]
     Active Substance: DOBUTAMINE HYDROCHLORIDE
  7. BISOPROLOL [Concomitant]
     Active Substance: BISOPROLOL
  8. LIXIANA [Concomitant]
     Active Substance: EDOXABAN TOSYLATE
  9. SLOW-K [Concomitant]
     Active Substance: POTASSIUM CHLORIDE
  10. OPSUMIT [Suspect]
     Active Substance: MACITENTAN
     Indication: PULMONARY ARTERIAL HYPERTENSION
     Dosage: 10 MG, QD
     Route: 048
     Dates: start: 20161115
  11. HUMULIN R [Suspect]
     Active Substance: INSULIN HUMAN
     Dosage: 10 ML, QD
     Route: 042
     Dates: start: 20161228, end: 20161228
  12. TAKELDA [Concomitant]
     Active Substance: ASPIRIN\LANSOPRAZOLE
  13. MUCOSOLVAN [Concomitant]
     Active Substance: AMBROXOL HYDROCHLORIDE
  14. SPIRONOLACTONE. [Concomitant]
     Active Substance: SPIRONOLACTONE
  15. OXYGEN. [Concomitant]
     Active Substance: OXYGEN
  16. PREDNISOLONE. [Concomitant]
     Active Substance: PREDNISOLONE
     Dosage: UNK
     Dates: start: 20161207
  17. PITAVASTATIN CA [Concomitant]
     Active Substance: PITAVASTATIN CALCIUM
  18. CARBOCISTEINE [Concomitant]
     Active Substance: CARBOCYSTEINE
  19. SAMSCA [Concomitant]
     Active Substance: TOLVAPTAN
  20. TANATRIL [Concomitant]
     Active Substance: IMIDAPRIL
  21. LASIX [Suspect]
     Active Substance: FUROSEMIDE
     Indication: RIGHT VENTRICULAR FAILURE
     Dosage: 2 ML, QD
     Route: 042
     Dates: start: 20161212, end: 20161222
  22. CANDESARTAN. [Concomitant]
     Active Substance: CANDESARTAN
  23. AMLODIPINE [Concomitant]
     Active Substance: AMLODIPINE BESYLATE
  24. MIYA-BM [Concomitant]
     Active Substance: CLOSTRIDIUM BUTYRICUM SPORES STRAIN M-55
  25. BELSOMRA [Concomitant]
     Active Substance: SUVOREXANT
  26. KALIMATE [Concomitant]
     Active Substance: CALCIUM POLYSTYRENE SULFONATE
  27. INOVAN [Concomitant]
     Active Substance: DOPAMINE HYDROCHLORIDE
  28. SOLDACTONE [Concomitant]
     Active Substance: CANRENOATE POTASSIUM
  29. VENTAVIS [Suspect]
     Active Substance: ILOPROST
     Indication: PULMONARY ARTERIAL HYPERTENSION
     Dosage: 25 ?G, Q4HRS
     Route: 055
     Dates: start: 20161125, end: 20161205
  30. HUMULIN R [Suspect]
     Active Substance: INSULIN HUMAN
     Indication: TYPE 2 DIABETES MELLITUS
     Dosage: 10 ML, QD
     Route: 042
     Dates: start: 20161211, end: 20161223
  31. REVATIO [Concomitant]
     Active Substance: SILDENAFIL CITRATE
  32. PLAVIX [Concomitant]
     Active Substance: CLOPIDOGREL BISULFATE
  33. JARDIANCE [Concomitant]
     Active Substance: EMPAGLIFLOZIN
  34. MAGNESIUM OXIDE. [Concomitant]
     Active Substance: MAGNESIUM OXIDE
  35. RISPERDAL [Concomitant]
     Active Substance: RISPERIDONE

REACTIONS (9)
  - Respiratory tract haemorrhage [Recovering/Resolving]
  - Haemoptysis [Recovering/Resolving]
  - Pyrexia [Recovering/Resolving]
  - Hypokalaemia [Recovering/Resolving]
  - Cough [Recovering/Resolving]
  - Respiratory tract infection [Recovering/Resolving]
  - Mechanical ventilation [Unknown]
  - Acute right ventricular failure [Recovering/Resolving]
  - Pneumonia influenzal [Recovering/Resolving]

NARRATIVE: CASE EVENT DATE: 20161203
